FAERS Safety Report 6165036-1 (Version None)
Quarter: 2009Q2

REPORT INFORMATION
  Report Type: 
  Country: None (occurrence: None)
  Receive Date: 20090423
  Receipt Date: 20090415
  Transmission Date: 20091009
  Serious: Yes (Other)
  Sender: FDA-Public Use
  Company Number: BR-ASTRAZENECA-2009UW09667

PATIENT
  Age: 60 Year
  Sex: Male

DRUGS (4)
  1. NEXIUM [Suspect]
     Indication: GASTRITIS
     Route: 048
     Dates: start: 20090317, end: 20090331
  2. NEXIUM [Suspect]
     Route: 048
     Dates: start: 20090401, end: 20090415
  3. PREDNISONE [Concomitant]
     Indication: RENAL DISORDER
     Route: 048
     Dates: start: 20000101
  4. ENALAPRIL MALEATE [Concomitant]
     Indication: HYPERTENSION
     Route: 048
     Dates: start: 20000101

REACTIONS (1)
  - VASCULITIS [None]
